FAERS Safety Report 12110761 (Version 2)
Quarter: 2017Q2

REPORT INFORMATION
  Report Type: Spontaneous
  Country: PT (occurrence: PT)
  Receive Date: 20160224
  Receipt Date: 20170619
  Transmission Date: 20170829
  Serious: Yes (Other)
  Sender: FDA-Public Use
  Company Number: PT-GILEAD-2016-0199846

PATIENT
  Sex: Female

DRUGS (7)
  1. VIREAD [Suspect]
     Active Substance: TENOFOVIR DISOPROXIL FUMARATE
     Indication: HEPATITIS B
     Dosage: 245 MG, QD
     Route: 048
     Dates: start: 20150518, end: 20151007
  2. LEXOTAN [Concomitant]
     Active Substance: BROMAZEPAM
     Route: 048
  3. CLARISSA [Concomitant]
     Indication: CONTRACEPTION
     Dosage: 1 DF, QD
     Route: 048
  4. CLARISSA [Concomitant]
     Route: 048
  5. VICTAN [Concomitant]
     Active Substance: ETHYL LOFLAZEPATE
     Dosage: EM SOS
     Route: 048
  6. VICTAN [Concomitant]
     Active Substance: ETHYL LOFLAZEPATE
     Dosage: EM SOS
     Route: 048
  7. LEXOTAN [Concomitant]
     Active Substance: BROMAZEPAM
     Dosage: 1.5 MG, QD
     Route: 048

REACTIONS (1)
  - Dry eye [Unknown]

NARRATIVE: CASE EVENT DATE: 2015
